FAERS Safety Report 5718839-9 (Version None)
Quarter: 2008Q2

REPORT INFORMATION
  Report Type: 
  Country: None (occurrence: None)
  Receive Date: 20080425
  Receipt Date: 20080401
  Transmission Date: 20081010
  Serious: No
  Sender: FDA-Public Use
  Company Number: US-BOEHRINGER INGELHEIM GMBH, GERMANY-2008-BP-02794BP

PATIENT
  Age: 81 Year
  Sex: Female
  Weight: 69 kg

DRUGS (7)
  1. MIRAPEX [Suspect]
     Indication: RESTLESS LEGS SYNDROME
     Dates: start: 20080101
  2. ZOLOFT [Concomitant]
  3. VYTORIN [Concomitant]
  4. TENORMIN [Concomitant]
  5. HYDROCHLOROTHIAZIDE [Concomitant]
  6. CALCIUM [Concomitant]
  7. ACCUPRIL [Concomitant]

REACTIONS (1)
  - ALOPECIA [None]
